FAERS Safety Report 8093372-0 (Version None)
Quarter: 2012Q1

REPORT INFORMATION
  Report Type: 
  Country: None (occurrence: None)
  Receive Date: 20120131
  Receipt Date: 20120125
  Transmission Date: 20120608
  Serious: Yes (Hospitalization, Other)
  Sender: FDA-Public Use
  Company Number: US-PFIZER INC-2012021359

PATIENT
  Sex: Female
  Weight: 54.875 kg

DRUGS (3)
  1. TOVIAZ [Suspect]
     Indication: URINARY INCONTINENCE
     Dosage: 4 MG, DAILY
  2. ADVAIR DISKUS 100/50 [Concomitant]
     Indication: CHRONIC OBSTRUCTIVE PULMONARY DISEASE
     Dosage: 250/50 UG, 2X/DAY
  3. DEXLANSOPRAZOLE [Concomitant]
     Indication: GASTRIC DISORDER
     Dosage: 60 MG, DAILY

REACTIONS (7)
  - CYSTITIS [None]
  - HEPATIC ENZYME DECREASED [None]
  - PYREXIA [None]
  - BLOOD POTASSIUM DECREASED [None]
  - INFLUENZA [None]
  - ESCHERICHIA INFECTION [None]
  - GASTROENTERITIS VIRAL [None]
